FAERS Safety Report 6450486-6 (Version None)
Quarter: 2009Q4

REPORT INFORMATION
  Report Type: 
  Country: None (occurrence: None)
  Receive Date: 20091123
  Receipt Date: 20091109
  Transmission Date: 20100525
  Serious: Yes (Hospitalization, Other)
  Sender: FDA-Public Use
  Company Number: PHHY2009JP36357

PATIENT
  Sex: Female
  Weight: 54 kg

DRUGS (6)
  1. DIOVAN T30230+TAB+HY [Suspect]
     Indication: HYPERTENSION
     Dosage: 160 MG, QD
     Route: 048
     Dates: start: 20071110, end: 20081118
  2. FLUITRAN [Concomitant]
     Indication: HYPERTENSION
     Dosage: UNK
     Route: 048
     Dates: start: 20070901, end: 20081118
  3. ATELEC [Concomitant]
     Indication: HYPERTENSION
     Dosage: UNK
     Route: 048
     Dates: start: 20070901, end: 20081118
  4. CRESTOR [Concomitant]
     Dosage: UNK
     Route: 048
     Dates: start: 20070901, end: 20081118
  5. TEGRETOL [Concomitant]
     Dosage: UNK
     Route: 048
     Dates: start: 20070901, end: 20081118
  6. BENZALIN [Concomitant]
     Dosage: UNK
     Route: 048
     Dates: start: 20070901, end: 20081118

REACTIONS (4)
  - BLOOD PRESSURE INCREASED [None]
  - BLOOD TRIGLYCERIDES INCREASED [None]
  - DIABETES MELLITUS [None]
  - RENAL IMPAIRMENT [None]
